FAERS Safety Report 14107999 (Version 2)
Quarter: 2017Q4

REPORT INFORMATION
  Report Type: Report from Study
  Country: US (occurrence: US)
  Receive Date: 20171019
  Receipt Date: 20171023
  Transmission Date: 20180321
  Serious: Yes (Other)
  Sender: FDA-Public Use
  Company Number: US-JNJFOC-20171010276

PATIENT
  Sex: Female

DRUGS (19)
  1. LOSARTAN POTASSIUM. [Concomitant]
     Active Substance: LOSARTAN POTASSIUM
     Route: 048
  2. ZINC. [Concomitant]
     Active Substance: ZINC
     Route: 048
  3. STELARA [Suspect]
     Active Substance: USTEKINUMAB
     Indication: PSORIASIS
     Route: 058
     Dates: start: 20160331
  4. FIORINAL [Concomitant]
     Active Substance: ASPIRIN\BUTALBITAL\CAFFEINE
     Route: 048
  5. OMEPRAZOLE. [Concomitant]
     Active Substance: OMEPRAZOLE
     Route: 048
  6. LOPID [Concomitant]
     Active Substance: GEMFIBROZIL
     Route: 048
     Dates: start: 20070423
  7. VITAMIN C [Concomitant]
     Active Substance: ASCORBIC ACID
     Route: 048
     Dates: start: 20081119
  8. GLUCOTROL [Concomitant]
     Active Substance: GLIPIZIDE
     Route: 048
  9. L-LYSINE HCL [Concomitant]
     Route: 048
  10. VITAMIN B-6 [Concomitant]
     Active Substance: PYRIDOXINE
     Route: 048
  11. CARVEDILOL. [Concomitant]
     Active Substance: CARVEDILOL
     Route: 048
  12. LIPITOR [Concomitant]
     Active Substance: ATORVASTATIN CALCIUM
     Dosage: AT BED TIME
     Route: 048
     Dates: start: 20161019
  13. LYRICA [Concomitant]
     Active Substance: PREGABALIN
     Route: 048
  14. NOVOLIN [Concomitant]
     Active Substance: INSULIN HUMAN
     Dosage: 100 UNIT/ML
     Route: 058
  15. NOVOLIN L [Concomitant]
     Active Substance: INSULIN HUMAN
     Dosage: U/ML
     Route: 065
  16. ALLOPURINOL. [Concomitant]
     Active Substance: ALLOPURINOL
     Route: 065
  17. ASPIRIN. [Concomitant]
     Active Substance: ASPIRIN
     Route: 065
     Dates: start: 20081119
  18. LASIX [Concomitant]
     Active Substance: FUROSEMIDE
     Route: 048
  19. POTASSIUM CHLORIDE. [Concomitant]
     Active Substance: POTASSIUM CHLORIDE
     Route: 048
     Dates: start: 20070423

REACTIONS (4)
  - Drug ineffective [Unknown]
  - Anxiety [Unknown]
  - Squamous cell carcinoma [Not Recovered/Not Resolved]
  - Psoriasis [Not Recovered/Not Resolved]
